FAERS Safety Report 10754875 (Version 2)
Quarter: 2015Q1

REPORT INFORMATION
  Report Type: Spontaneous
  Country: US (occurrence: US)
  Receive Date: 20150202
  Receipt Date: 20150303
  Transmission Date: 20150721
  Serious: No
  Sender: FDA-Public Use
  Company Number: US-PFIZER INC-2015033584

PATIENT
  Age: 53 Year
  Sex: Male

DRUGS (1)
  1. SUTENT [Suspect]
     Active Substance: SUNITINIB MALATE
     Indication: GASTRIC CANCER
     Dosage: 50 MG, CYCLIC (1 CAPSULE EVERY DAY FOR 4 WEEKS ON THEN 2 WEEKS OFF)

REACTIONS (16)
  - Eye pain [Unknown]
  - Blister [Unknown]
  - Tongue ulceration [Unknown]
  - Abdominal pain upper [Unknown]
  - Vomiting [Unknown]
  - Product use issue [Unknown]
  - Nausea [Unknown]
  - Gingival pain [Unknown]
  - Impaired driving ability [Unknown]
  - Skin exfoliation [Unknown]
  - Myalgia [Unknown]
  - Vertigo [Unknown]
  - Palmar-plantar erythrodysaesthesia syndrome [Unknown]
  - Erythema [Unknown]
  - Mouth ulceration [Unknown]
  - Tenderness [Unknown]
